FAERS Safety Report 6620330-2 (Version None)
Quarter: 2010Q1

REPORT INFORMATION
  Report Type: 
  Country: None (occurrence: None)
  Receive Date: 20100309
  Receipt Date: 20100225
  Transmission Date: 20100710
  Serious: Yes (Hospitalization)
  Sender: FDA-Public Use
  Company Number: US-PFIZER INC-2008053063

PATIENT
  Sex: Male
  Weight: 72 kg

DRUGS (6)
  1. SUNITINIB MALATE [Suspect]
     Indication: PROSTATE CANCER
     Dosage: 25 MG DAILY FOR 14 DAYS, 1 WEEK BREAK
     Route: 048
     Dates: start: 20080513, end: 20080617
  2. DOCETAXEL [Suspect]
     Indication: PROSTATE CANCER
     Dosage: 60 MG/M2, EVERY 3 WEEKS, TDD 109 MG
     Route: 042
     Dates: start: 20080513, end: 20080604
  3. PREDNISONE [Suspect]
     Indication: PROSTATE CANCER
     Dosage: 5 MG, 2X/DAY, TDD 10 MG
     Route: 048
     Dates: start: 20080513, end: 20080624
  4. HYDROCHLOROTHIAZIDE [Concomitant]
     Route: 048
     Dates: start: 20080418
  5. LIPITOR [Concomitant]
     Route: 048
     Dates: start: 20080101
  6. LUPRON [Concomitant]
     Route: 058
     Dates: start: 20030101

REACTIONS (2)
  - CHEST PAIN [None]
  - DYSPNOEA [None]
